FAERS Safety Report 10220372 (Version 1)
Quarter: 2014Q2

REPORT INFORMATION
  Report Type: Spontaneous
  Country: US (occurrence: US)
  Receive Date: 20140606
  Receipt Date: 20140606
  Transmission Date: 20141212
  Serious: No
  Sender: FDA-Public Use
  Company Number: US-BIOGENIDEC-2014BI050968

PATIENT
  Sex: Female

DRUGS (4)
  1. AVONEX [Suspect]
     Indication: MULTIPLE SCLEROSIS
     Route: 030
  2. AVONEX [Suspect]
     Indication: MULTIPLE SCLEROSIS
     Route: 030
     Dates: start: 19990204, end: 20090405
  3. AVONEX [Suspect]
     Indication: MULTIPLE SCLEROSIS
     Route: 030
     Dates: start: 20091031
  4. TYSABRI [Concomitant]
     Indication: MULTIPLE SCLEROSIS
     Route: 042

REACTIONS (4)
  - Multiple sclerosis [Unknown]
  - Feeling abnormal [Not Recovered/Not Resolved]
  - Influenza like illness [Not Recovered/Not Resolved]
  - Headache [Not Recovered/Not Resolved]
